FAERS Safety Report 9735785 (Version 1)
Quarter: 2013Q4

REPORT INFORMATION
  Report Type: Spontaneous
  Country: US (occurrence: US)
  Receive Date: 20131206
  Receipt Date: 20131206
  Transmission Date: 20140711
  Serious: No
  Sender: FDA-Public Use
  Company Number: US-GILEAD-2009-0023102

PATIENT
  Sex: Female
  Weight: 74.84 kg

DRUGS (11)
  1. LETAIRIS [Suspect]
     Indication: PULMONARY ARTERIAL HYPERTENSION
     Route: 048
     Dates: start: 20090616
  2. AMLOPIDINE BESYLATE [Concomitant]
  3. DIOVAN [Concomitant]
  4. CARVEDILOL [Concomitant]
  5. ISOSORBIDE [Concomitant]
  6. CRESTOR [Concomitant]
  7. METFORMIN [Concomitant]
  8. GLIPIZIDE XL [Concomitant]
  9. ASPIRIN [Concomitant]
  10. CITALOPRAM [Concomitant]
  11. XALATAN [Concomitant]

REACTIONS (2)
  - Local swelling [Unknown]
  - Nasal congestion [Unknown]
